FAERS Safety Report 8353962-4 (Version None)
Quarter: 2012Q2

REPORT INFORMATION
  Report Type: 
  Country: None (occurrence: None)
  Receive Date: 20120511
  Receipt Date: 20120507
  Transmission Date: 20120825
  Serious: Yes (Other)
  Sender: FDA-Public Use
  Company Number: US-UCBSA-056914

PATIENT
  Age: 56 Year
  Sex: Female

DRUGS (1)
  1. CIMZIA [Suspect]
     Indication: RHEUMATOID ARTHRITIS
     Dosage: DOSE: 400 MG, 2/200 MG AT WEEK 0,2 AND 4
     Route: 058
     Dates: start: 20120414, end: 20120414

REACTIONS (4)
  - DYSPNOEA [None]
  - RESPIRATORY TRACT INFLAMMATION [None]
  - FATIGUE [None]
  - PALPITATIONS [None]
